FAERS Safety Report 9854235 (Version 1)
Quarter: 2014Q1

REPORT INFORMATION
  Report Type: Spontaneous
  Country: GB (occurrence: GB)
  Receive Date: 20140130
  Receipt Date: 20140130
  Transmission Date: 20141002
  Serious: Yes (Disabling)
  Sender: FDA-Public Use
  Company Number: GB-ASTRAZENECA-2014SE04850

PATIENT
  Age: 72 Year
  Sex: Male
  Weight: 61.1 kg

DRUGS (12)
  1. BRILIQUE [Suspect]
     Route: 048
     Dates: start: 20131210
  2. AMLODIPINE [Concomitant]
     Dates: start: 20130828, end: 20131023
  3. ASPIRIN [Concomitant]
     Dates: start: 20130821
  4. ATORVASTATIN [Concomitant]
     Dates: start: 20130920
  5. BISOPROLOL [Concomitant]
     Dates: start: 20130920
  6. CETIRIZINE [Concomitant]
     Dates: start: 20140103
  7. CHEMYDUR XL [Concomitant]
     Dates: start: 20130828
  8. CLOPIDOGREL [Concomitant]
     Dates: start: 20140102
  9. CO-CODAMOL [Concomitant]
     Dates: start: 20130920
  10. FLUCLOXACILLIN [Concomitant]
     Dates: start: 20131227, end: 20140103
  11. GLYCERYL TRINITRATE [Concomitant]
     Dates: start: 20131216
  12. RAMIPRIL [Concomitant]
     Dates: start: 20131210

REACTIONS (3)
  - Cough [Recovered/Resolved]
  - Eczema [Recovered/Resolved]
  - Dyspnoea [Recovered/Resolved]
